FAERS Safety Report 8377477-2 (Version None)
Quarter: 2012Q2

REPORT INFORMATION
  Report Type: 
  Country: None (occurrence: None)
  Receive Date: 20120522
  Receipt Date: 20110412
  Transmission Date: 20120825
  Serious: No
  Sender: FDA-Public Use
  Company Number: US-ASTRAZENECA-2011SE11445

PATIENT
  Age: 51 Year
  Sex: Female
  Weight: 81.6 kg

DRUGS (7)
  1. PROVENTIL [Concomitant]
     Dosage: 90 MCG TWO PUFFS QID PRN
     Route: 055
  2. ZYRTEC [Concomitant]
  3. PRILOSEC [Suspect]
     Route: 048
  4. ADVAIR DISKUS 100/50 [Concomitant]
     Dosage: 250 MCG -50 MCG ONE PUFF TWICE DAILY
  5. MOTRIN [Concomitant]
  6. METOCLOPRAMIDE [Concomitant]
  7. PATANOL [Concomitant]

REACTIONS (3)
  - GASTROOESOPHAGEAL REFLUX DISEASE [None]
  - ARTHRALGIA [None]
  - COUGH [None]
